FAERS Safety Report 12607835 (Version 1)
Quarter: 2016Q3

REPORT INFORMATION
  Report Type: Spontaneous
  Country: FR (occurrence: FR)
  Receive Date: 20160729
  Receipt Date: 20160729
  Transmission Date: 20161109
  Serious: Yes (Other)
  Sender: FDA-Public Use
  Company Number: FR-ASTRAZENECA-2016SE80869

PATIENT
  Age: 65 Year
  Sex: Male

DRUGS (15)
  1. LOVENOX [Suspect]
     Active Substance: ENOXAPARIN SODIUM
     Indication: CHEST PAIN
     Route: 058
     Dates: start: 20160630, end: 20160630
  2. BRILIQUE [Suspect]
     Active Substance: TICAGRELOR
     Indication: MYOCARDIAL INFARCTION
     Route: 048
     Dates: start: 20160701
  3. RAMIPRIL. [Concomitant]
     Active Substance: RAMIPRIL
     Indication: MYOCARDIAL INFARCTION
     Route: 048
     Dates: start: 20160701, end: 20160706
  4. PRIMPERAN [Concomitant]
     Active Substance: METOCLOPRAMIDE HYDROCHLORIDE
  5. AGRASTAT [Suspect]
     Active Substance: TIROFIBAN HYDROCHLORIDE
     Indication: CORONARY ANGIOPLASTY
     Dosage: SINGLE DOSE
     Route: 042
     Dates: start: 20160702, end: 20160702
  6. MORPHINE [Concomitant]
     Active Substance: MORPHINE
  7. OMNIPAQUE [Suspect]
     Active Substance: IOHEXOL
     Indication: SCAN
     Dosage: 185.0ML ONCE/SINGLE ADMINISTRATION
     Route: 042
     Dates: start: 20160701, end: 20160701
  8. FUROSEMIDE. [Suspect]
     Active Substance: FUROSEMIDE
     Indication: MYOCARDIAL INFARCTION
     Route: 048
     Dates: start: 20160701, end: 20160706
  9. BISOCE [Suspect]
     Active Substance: BISOPROLOL
     Route: 048
     Dates: start: 20160701, end: 20160705
  10. ASPEGIC [Concomitant]
     Active Substance: ASPIRIN DL-LYSINE
     Indication: CHEST PAIN
     Route: 048
     Dates: start: 20160630, end: 20160630
  11. PLAVIX [Concomitant]
     Active Substance: CLOPIDOGREL BISULFATE
     Indication: MYOCARDIAL INFARCTION
     Dosage: DAILY
     Route: 048
     Dates: start: 20160630, end: 20160630
  12. DIAMOX SEQUELS [Suspect]
     Active Substance: ACETAZOLAMIDE
     Indication: MYOCARDIAL INFARCTION
     Route: 048
     Dates: start: 20160701, end: 20160705
  13. PARACETAMOL [Concomitant]
     Active Substance: ACETAMINOPHEN
  14. TAHOR [Concomitant]
     Active Substance: ATORVASTATIN CALCIUM
     Indication: CARDIOVASCULAR EVENT PROPHYLAXIS
     Route: 048
     Dates: start: 20160701
  15. KARDEGIC [Concomitant]
     Active Substance: ASPIRIN LYSINE
     Indication: MYOCARDIAL INFARCTION
     Route: 048
     Dates: start: 20160701

REACTIONS (5)
  - Rash maculo-papular [Recovered/Resolved]
  - Pruritus [Unknown]
  - Chills [Recovered/Resolved]
  - Malaise [Recovered/Resolved]
  - Rash vesicular [Unknown]

NARRATIVE: CASE EVENT DATE: 20160704
